FAERS Safety Report 17875712 (Version 3)
Quarter: 2024Q1

REPORT INFORMATION
  Report Type: Spontaneous
  Country: US (occurrence: US)
  Receive Date: 20200609
  Receipt Date: 20240117
  Transmission Date: 20240410
  Serious: Yes (Other)
  Sender: FDA-Public Use
  Company Number: US-BAYER-2020-110681

PATIENT
  Sex: Female

DRUGS (1)
  1. MIRENA [Suspect]
     Active Substance: LEVONORGESTREL
     Dosage: 20?G/DAY
     Route: 015
     Dates: start: 2012

REACTIONS (5)
  - Pregnancy with contraceptive device [None]
  - Abortion spontaneous [None]
  - Device dislocation [None]
  - Drug ineffective [None]
  - Device use issue [None]
